FAERS Safety Report 24557945 (Version 1)
Quarter: 2024Q4

REPORT INFORMATION
  Report Type: Spontaneous
  Country: US (occurrence: US)
  Receive Date: 20241028
  Receipt Date: 20241028
  Transmission Date: 20250114
  Serious: Yes (Hospitalization, Other)
  Sender: RANBAXY
  Company Number: US-SUN PHARMACEUTICAL INDUSTRIES LTD-2024R1-475699

PATIENT
  Age: 74 Year
  Sex: Male

DRUGS (1)
  1. AMLODIPINE [Suspect]
     Active Substance: AMLODIPINE BESYLATE
     Indication: Product used for unknown indication
     Dosage: 5 MILLIGRAM
     Route: 065

REACTIONS (7)
  - Confusional state [Unknown]
  - Fall [Unknown]
  - Nausea [Unknown]
  - Overdose [Unknown]
  - Sinus bradycardia [Unknown]
  - Suicidal ideation [Unknown]
  - Toxicity to various agents [Unknown]
